FAERS Safety Report 8710833 (Version 2)
Quarter: 2012Q4

REPORT INFORMATION
  Report Type: Report from Study
  Country: US (occurrence: US)
  Receive Date: 20120807
  Receipt Date: 20120828
  Transmission Date: 20130627
  Serious: Yes (Hospitalization)
  Sender: FDA-Public Use
  Company Number: US-US-EMD SERONO, INC.-7151817

PATIENT
  Age: 53 None
  Sex: Female

DRUGS (2)
  1. REBIF [Suspect]
     Indication: PRODUCT USED FOR UNKNOWN INDICATION
     Route: 058
     Dates: start: 20120609, end: 20120725
  2. REBIF [Suspect]
     Route: 058
     Dates: start: 20120808

REACTIONS (4)
  - Staphylococcal infection [Unknown]
  - Drug hypersensitivity [Unknown]
  - Blister [Unknown]
  - Herpes zoster [Unknown]
